FAERS Safety Report 21512901 (Version 5)
Quarter: 2024Q3

REPORT INFORMATION
  Report Type: Report from Study
  Country: US (occurrence: US)
  Receive Date: 20221027
  Receipt Date: 20240927
  Transmission Date: 20241017
  Serious: Yes (Hospitalization, Other)
  Sender: ABBVIE
  Company Number: US-ABBVIE-4176229

PATIENT
  Age: 71 Year
  Sex: Female
  Weight: 59.874 kg

DRUGS (2)
  1. HUMIRA [Suspect]
     Active Substance: ADALIMUMAB
     Indication: Rheumatoid arthritis
     Dosage: CITRATE FREE?FORM STRENGTH 40MG?END DATE 2022
     Route: 058
     Dates: start: 20220101
  2. JANSSEN COVID-19 VACCINE [Concomitant]
     Active Substance: AD26.COV2.S
     Indication: COVID-19 immunisation
     Dosage: 1ST DOSE?ONE IN ONCE
     Route: 030
     Dates: start: 20210920, end: 20210920

REACTIONS (12)
  - Cerebral thrombosis [Unknown]
  - Upper respiratory tract infection [Unknown]
  - Peripheral swelling [Unknown]
  - Loss of consciousness [Unknown]
  - Cerebrovascular accident [Recovered/Resolved]
  - Vertigo [Unknown]
  - Musculoskeletal stiffness [Unknown]
  - Illness [Unknown]
  - Fatigue [Unknown]
  - COVID-19 [Unknown]
  - Lung disorder [Unknown]
  - Cerebrovascular accident [Not Recovered/Not Resolved]

NARRATIVE: CASE EVENT DATE: 20190801
